FAERS Safety Report 6181279-5 (Version None)
Quarter: 2009Q2

REPORT INFORMATION
  Report Type: 
  Country: None (occurrence: None)
  Receive Date: 20090504
  Receipt Date: 20090423
  Transmission Date: 20091009
  Serious: Yes (Hospitalization)
  Sender: FDA-Public Use
  Company Number: 6050903

PATIENT
  Age: 80 Year
  Sex: Male

DRUGS (9)
  1. LEVOTHYROXINE SODIUM [Suspect]
     Indication: THYROID DISORDER
     Dosage: 25 MCG (25 MCG, 1 D), ORAL; LONG TIME
     Route: 048
  2. ENALAPRIL MALEATE [Suspect]
     Indication: HYPERTENSION
     Dosage: ORAL; LONG TIME
     Route: 048
     Dates: end: 20090320
  3. FUROSEMIDE [Suspect]
     Indication: HYPERTENSION
     Dosage: 1 DOSAGE FORMS (1 DOSAGE FORMS, 1 D),  ORAL; LONG TIME
     Route: 048
  4. AMIODARONE HCL [Suspect]
     Indication: ATRIAL FIBRILLATION
     Dosage: 142.8571 MG (200 MG, 5 IN 1 WK), ORAL;  LONG TIME
     Route: 048
  5. SERITIDE DISKUS (INHALATION POWDER, PRE-DISPENSED)(FLUTICASONE PROPION [Suspect]
     Indication: CHRONIC OBSTRUCTIVE PULMONARY DISEASE
     Dosage: 2 DOSAGE FORMS (2 DOSAGE FORMS, 1 D) ,RESPIRATORY (INHALATION); LONG TIME
     Route: 055
  6. ATARAX [Suspect]
     Indication: ANXIETY
     Dosage: 1 DOSAGE FORMS (1 DOSAGE FORMS, 1 D), ORAL; LONG TIME
     Route: 048
  7. PREVISCAN (20 MG, TABLET) (PLUINDIONE) [Suspect]
     Indication: ATRIAL FIBRILLATION
     Dosage: 5 MG (5 MG, 1 D), ORAL; LONG TIME
     Route: 048
  8. DIPROSONE (CREAM)(EETAMETHASONE DIPROPIONATE) [Concomitant]
  9. AERIUS (TABLET) (DESLORATADINE) [Concomitant]

REACTIONS (8)
  - ERYSIPELAS [None]
  - ERYTHEMA [None]
  - HAEMATOMA [None]
  - INFECTION [None]
  - OEDEMA PERIPHERAL [None]
  - PRURIGO [None]
  - RASH PAPULAR [None]
  - SKIN REACTION [None]
